FAERS Safety Report 21093198 (Version 4)
Quarter: 2023Q2

REPORT INFORMATION
  Report Type: Report from Study
  Country: US (occurrence: US)
  Receive Date: 20220718
  Receipt Date: 20230410
  Transmission Date: 20230722
  Serious: Yes (Other)
  Sender: FDA-Public Use
  Company Number: US-TAKEDA-2020TUS044393

PATIENT
  Sex: Female

DRUGS (1)
  1. HUMAN IMMUNOGLOBULIN G [Suspect]
     Active Substance: HUMAN IMMUNOGLOBULIN G
     Indication: Immunodeficiency common variable
     Dosage: UNK
     Route: 042

REACTIONS (15)
  - Sinusitis bacterial [Unknown]
  - Gait disturbance [Unknown]
  - Joint injury [Unknown]
  - Gastric dilatation [Unknown]
  - Urinary tract infection [Unknown]
  - Alopecia [Recovered/Resolved]
  - Bronchitis [Unknown]
  - Dysgeusia [Unknown]
  - COVID-19 [Unknown]
  - Upper-airway cough syndrome [Unknown]
  - Impaired healing [Unknown]
  - Blood glucose fluctuation [Unknown]
  - Bronchospasm [Unknown]
  - Anaemia [Unknown]
  - Asthenia [Unknown]
